FAERS Safety Report 7026258-0 (Version None)
Quarter: 2010Q4

REPORT INFORMATION
  Report Type: 
  Country: None (occurrence: None)
  Receive Date: 20101004
  Receipt Date: 20100927
  Transmission Date: 20110411
  Serious: No
  Sender: FDA-Public Use
  Company Number: US-ROXANE LABORATORIES, INC.-2010-RO-01302RO

PATIENT
  Sex: Female

DRUGS (10)
  1. FUROSEMIDE [Suspect]
  2. PREDNISONE [Suspect]
  3. AVANDIA [Suspect]
  4. GLUCOTROL [Suspect]
  5. GLUCOPHAGE [Suspect]
  6. GLIPIZIDE [Suspect]
  7. TRAMADOL HCL [Suspect]
  8. VERAPAMIL [Suspect]
  9. OMEPRAZOLE [Suspect]
  10. GABAPENTIN [Suspect]

REACTIONS (7)
  - BALANCE DISORDER [None]
  - DYSPNOEA [None]
  - FATIGUE [None]
  - HYPERHIDROSIS [None]
  - PALPITATIONS [None]
  - PRURITUS [None]
  - SWELLING [None]
